FAERS Safety Report 5821786-5 (Version None)
Quarter: 2008Q3

REPORT INFORMATION
  Report Type: 
  Country: None (occurrence: None)
  Receive Date: 20080722
  Receipt Date: 20080711
  Transmission Date: 20090109
  Serious: Yes (Hospitalization)
  Sender: FDA-Public Use
  Company Number: 2008AL008204

PATIENT
  Age: 86 Year
  Sex: Male

DRUGS (22)
  1. CYPROHEPTADINE HYDROCHLORIDE SYRUP [Suspect]
     Dosage: 4 MG; QD;
  2. SERTRALINE HCL [Suspect]
     Dosage: 75 MG; QD; PO
     Route: 048
  3. ACETYLSALICYLIC ACID SRT [Concomitant]
  4. CLOPIDOGREL [Concomitant]
  5. FLUNISOLIDE [Concomitant]
  6. ALBUTEROL [Concomitant]
  7. IPRATROPIUM BROMINE [Concomitant]
  8. MOMETASONE FUROATE [Concomitant]
  9. DENEZEPIL (SIC) [Concomitant]
  10. FAMOTIDINE [Concomitant]
  11. FUROSEMIDE [Concomitant]
  12. ISOSORBIDE MONONITRATE [Concomitant]
  13. LISINOPRIL [Concomitant]
  14. MAGNESIUM GLUCONATE [Concomitant]
  15. METOCLOPRAMIDE [Concomitant]
  16. METOPROLOL TARTRATE [Concomitant]
  17. NITROGLYCERIN [Concomitant]
  18. SIMVASTATIN [Concomitant]
  19. MODAFINIL [Concomitant]
  20. LEVETIRACETAM [Concomitant]
  21. INSULIN SUSPENSION [Concomitant]
  22. INSULIN ASPART [Concomitant]

REACTIONS (5)
  - ACUTE MYOCARDIAL INFARCTION [None]
  - ANOREXIA [None]
  - DEHYDRATION [None]
  - HYPOPHAGIA [None]
  - NAUSEA [None]
